FAERS Safety Report 9175890 (Version 1)
Quarter: 2013Q1

REPORT INFORMATION
  Report Type: Spontaneous
  Country: DE (occurrence: DE)
  Receive Date: 20130320
  Receipt Date: 20130320
  Transmission Date: 20140127
  Serious: Yes (Disabling, Other)
  Sender: FDA-Public Use
  Company Number: DE-MYLANLABS-2013S1005273

PATIENT
  Age: 69 Year
  Sex: Female
  Weight: 70 kg

DRUGS (2)
  1. CLARITHROMYCIN [Suspect]
     Indication: PNEUMONIA
     Dosage: 1-0-1
     Route: 048
     Dates: start: 20110204, end: 20110205
  2. BRILIQUE [Suspect]
     Indication: ACUTE MYOCARDIAL INFARCTION
     Dosage: 1-0-1
     Route: 048
     Dates: start: 20110204, end: 20110205

REACTIONS (5)
  - Delirium [Unknown]
  - Depressed level of consciousness [Unknown]
  - Fall [Unknown]
  - Hallucination [Unknown]
  - Transaminases increased [Unknown]
